FAERS Safety Report 8236678-4 (Version None)
Quarter: 2012Q1

REPORT INFORMATION
  Report Type: 
  Country: None (occurrence: None)
  Receive Date: 20120326
  Receipt Date: 20120326
  Transmission Date: 20120608
  Serious: Yes (Other)
  Sender: FDA-Public Use
  Company Number: None

PATIENT
  Sex: Female
  Weight: 56.6996 kg

DRUGS (2)
  1. METHYLPREDNISOLONE [Suspect]
     Indication: PLANTAR FASCIITIS
     Dates: start: 20110401, end: 20110801
  2. METHYLPREDNISOLONE [Suspect]
     Indication: RASH
     Dates: start: 20110401, end: 20110801

REACTIONS (4)
  - DRY SKIN [None]
  - FATIGUE [None]
  - RASH [None]
  - STICKY SKIN [None]
